FAERS Safety Report 4877982-7 (Version None)
Quarter: 2006Q1

REPORT INFORMATION
  Report Type: 
  Country: None (occurrence: None)
  Receive Date: 20060110
  Receipt Date: 20051227
  Transmission Date: 20060701
  Serious: Yes (Other)
  Sender: FDA-Public Use
  Company Number: 8014055

PATIENT
  Age: 36 Year
  Sex: Female
  Weight: 58.5 kg

DRUGS (4)
  1. LEVETIRACETAM [Suspect]
     Indication: EPILEPSY
     Dosage: 500 MG 2/D PO
     Route: 048
     Dates: start: 20051013, end: 20051030
  2. CARBAMAZEPINE [Concomitant]
  3. VALPROATE SODIUM [Concomitant]
  4. LAMOTRIGINE [Concomitant]

REACTIONS (8)
  - AGGRESSION [None]
  - BRADYCARDIA [None]
  - CONDITION AGGRAVATED [None]
  - CONVULSION [None]
  - GENERALISED OEDEMA [None]
  - INSOMNIA [None]
  - IRRITABILITY [None]
  - PARTIAL SEIZURES [None]
